FAERS Safety Report 12780684 (Version 5)
Quarter: 2017Q4

REPORT INFORMATION
  Report Type: Spontaneous
  Country: US (occurrence: US)
  Receive Date: 20160926
  Receipt Date: 20171127
  Transmission Date: 20180320
  Serious: Yes (Hospitalization, Other)
  Sender: FDA-Public Use
  Company Number: US-PFIZER INC-2016447006

PATIENT
  Age: 74 Year
  Sex: Female
  Weight: 65.77 kg

DRUGS (8)
  1. LOVASTATIN. [Concomitant]
     Active Substance: LOVASTATIN
     Indication: BLOOD CHOLESTEROL INCREASED
     Dosage: 20 MG, 1X/DAY
     Route: 048
  2. CALCIUM D [Concomitant]
     Active Substance: CALCIUM\VITAMIN D
     Indication: BONE DISORDER
     Dosage: 1 DF, 2X/DAY
  3. IBRANCE [Suspect]
     Active Substance: PALBOCICLIB
     Indication: BREAST CANCER METASTATIC
     Dosage: 75 MG, CYCLIC (ONCE A DAY FOR 21 DAYS, AND THEN STOPS FOR 7)
     Route: 048
     Dates: start: 201608
  4. IBRANCE [Suspect]
     Active Substance: PALBOCICLIB
     Dosage: UNK, 1X/DAY
     Route: 048
     Dates: start: 20160910
  5. IBRANCE [Suspect]
     Active Substance: PALBOCICLIB
     Dosage: 75 MG, 1X/DAY
     Route: 048
     Dates: start: 201708
  6. IBRANCE [Suspect]
     Active Substance: PALBOCICLIB
     Dosage: 75 MG, CYCLIC (75MG BY MOUTH ONCE A DAY AT NOON AFTER LUNCH FOR 21 DAYS AND THEN OFF FOR 7)
     Route: 048
     Dates: start: 201611
  7. LETROZOLE. [Concomitant]
     Active Substance: LETROZOLE
     Indication: BLOOD OESTROGEN ABNORMAL
     Dosage: 2.5 MG, 1X/DAY
     Route: 048
  8. ASPIRIN. [Concomitant]
     Active Substance: ASPIRIN
     Indication: ANTICOAGULANT THERAPY
     Dosage: 325 MG, 1X/DAY
     Route: 048

REACTIONS (4)
  - White blood cell count decreased [Recovered/Resolved]
  - Spinal fracture [Not Recovered/Not Resolved]
  - Body height decreased [Recovered/Resolved]
  - Road traffic accident [Not Recovered/Not Resolved]

NARRATIVE: CASE EVENT DATE: 20160919
